FAERS Safety Report 9700399 (Version 1)
Quarter: 2013Q4

REPORT INFORMATION
  Report Type: Spontaneous
  Country: ES (occurrence: ES)
  Receive Date: 20131121
  Receipt Date: 20131121
  Transmission Date: 20140711
  Serious: Yes (Life-Threatening, Hospitalization, Other)
  Sender: FDA-Public Use
  Company Number: ES-ASTRAZENECA-2013SE84727

PATIENT
  Age: 50 Year
  Sex: Male

DRUGS (2)
  1. SEROQUEL [Suspect]
     Dosage: 6 TABLETS 22 GRAMS IN ONE DAY
     Route: 048
     Dates: start: 20121115, end: 20121115
  2. TRANXILIUM [Interacting]
     Dosage: 30 CAPSULES 900 MG IN ONE DAY
     Route: 048
     Dates: start: 20121115, end: 20121115

REACTIONS (3)
  - Coma [Recovered/Resolved]
  - Intentional overdose [Recovered/Resolved]
  - Drug interaction [Unknown]
